FAERS Safety Report 15731374 (Version 1)
Quarter: 2018Q4

REPORT INFORMATION
  Report Type: Spontaneous
  Country: GB (occurrence: GB)
  Receive Date: 20181217
  Receipt Date: 20181217
  Transmission Date: 20190205
  Serious: Yes (Death)
  Sender: FDA-Public Use
  Company Number: GB-SA-2018SA340230

PATIENT
  Age: 31 Year
  Sex: Female

DRUGS (6)
  1. DROPERIDOL. [Suspect]
     Active Substance: DROPERIDOL
     Indication: APPENDICECTOMY
     Dosage: UNK UNK, QD
     Route: 065
  2. FENTANYL. [Suspect]
     Active Substance: FENTANYL
     Indication: APPENDICECTOMY
     Dosage: UNK UNK, QD
     Route: 065
  3. THIOPENTAL SODIUM. [Suspect]
     Active Substance: THIOPENTAL SODIUM
     Indication: APPENDICECTOMY
     Dosage: UNK UNK, QD
     Route: 065
  4. LIDOCAINE. [Suspect]
     Active Substance: LIDOCAINE
     Indication: APPENDICECTOMY
     Dosage: UNK UNK, QD
     Route: 065
  5. NITROUS OXIDE. [Suspect]
     Active Substance: NITROUS OXIDE
     Indication: APPENDICECTOMY
     Dosage: UNK UNK, QD
  6. FLAXEDIL [Suspect]
     Active Substance: GALLAMINE TRIETHIODIDE
     Indication: APPENDICECTOMY
     Dosage: UNK UNK, QD
     Route: 051

REACTIONS (1)
  - Cardiac arrest [Fatal]

NARRATIVE: CASE EVENT DATE: 19740706
